FAERS Safety Report 23585042 (Version 1)
Quarter: 2024Q1

REPORT INFORMATION
  Report Type: Spontaneous
  Country: CN (occurrence: CN)
  Receive Date: 20240301
  Receipt Date: 20240301
  Transmission Date: 20240410
  Serious: Yes (Other)
  Sender: FDA-Public Use
  Company Number: None

PATIENT
  Age: 59 Year
  Sex: Male
  Weight: 75 kg

DRUGS (3)
  1. MANNITOL [Suspect]
     Active Substance: MANNITOL
     Indication: Swelling
     Dosage: 25 G ONCE DAILY (DOSAGE FORM: INJECTION)
     Route: 041
     Dates: start: 20240118, end: 20240125
  2. STANOZOLOL [Suspect]
     Active Substance: STANOZOLOL
     Indication: Nutritional supplementation
     Dosage: 2 MG THRICE DAILY
     Route: 048
     Dates: start: 20240118, end: 20240125
  3. EPERISONE HYDROCHLORIDE [Suspect]
     Active Substance: EPERISONE HYDROCHLORIDE
     Indication: Muscle relaxant therapy
     Dosage: 50 MG THRICE DAILY
     Route: 048
     Dates: start: 20240123, end: 20240125

REACTIONS (3)
  - Pruritus [Recovering/Resolving]
  - Rash erythematous [Recovering/Resolving]
  - Urticaria [Unknown]

NARRATIVE: CASE EVENT DATE: 20240125
